FAERS Safety Report 8049691 (Version 3)
Quarter: 2013Q2

REPORT INFORMATION
  Report Type: Report from Study
  Country: US (occurrence: US)
  Receive Date: 20110722
  Receipt Date: 20130402
  Transmission Date: 20140414
  Serious: Yes (Hospitalization)
  Sender: FDA-Public Use
  Company Number: US-ROCHE-790825

PATIENT
  Age: 50 Year
  Sex: Male
  Weight: 75.4 kg

DRUGS (8)
  1. PEG-INTERFERON ALFA 2A [Suspect]
     Indication: CHRONIC HEPATITIS C
     Dosage: FORM: LOI
     Route: 058
     Dates: start: 20110513, end: 20110707
  2. RIBAVIRIN [Suspect]
     Indication: CHRONIC HEPATITIS C
     Route: 048
  3. RIBAVIRIN [Suspect]
     Route: 048
  4. VANCOMYCIN [Suspect]
     Indication: ABSCESS
     Route: 042
     Dates: start: 20110707, end: 20110711
  5. DOXYCYCLINE [Suspect]
     Indication: ABSCESS
     Route: 048
  6. COLLAGENASE [Suspect]
     Indication: ABSCESS
     Route: 061
  7. SULFAMETHOXAZOLE/TRIMETHOPRIM [Suspect]
     Indication: ABSCESS
     Route: 048
  8. BI 201335 [Suspect]
     Indication: CHRONIC HEPATITIS C
     Route: 048
     Dates: start: 20110513, end: 20110707

REACTIONS (3)
  - Dehydration [Recovering/Resolving]
  - Subcutaneous abscess [Not Recovered/Not Resolved]
  - Sepsis [Recovering/Resolving]
